FAERS Safety Report 10180866 (Version 1)
Quarter: 2014Q2

REPORT INFORMATION
  Report Type: Spontaneous
  Country: US (occurrence: US)
  Receive Date: 20140519
  Receipt Date: 20140519
  Transmission Date: 20141212
  Serious: No
  Sender: FDA-Public Use
  Company Number: US-AMGEN INC.-USASP2014007818

PATIENT
  Age: 72 Year
  Sex: Female

DRUGS (6)
  1. PROLIA [Suspect]
     Indication: OSTEOPOROSIS POSTMENOPAUSAL
     Dosage: UNK
     Route: 065
     Dates: start: 20131223
  2. LISINOPRIL [Concomitant]
     Dosage: 10 MG, QD
  3. SIMVASTATIN [Concomitant]
     Dosage: UNK UNK, QHS
  4. ACIPHEX [Concomitant]
     Dosage: 10 MG, QD
  5. CALCIUM [Concomitant]
  6. VITAMIN D                          /00107901/ [Concomitant]

REACTIONS (1)
  - Cough [Unknown]
